FAERS Safety Report 7955773-8 (Version None)
Quarter: 2011Q4

REPORT INFORMATION
  Report Type: 
  Country: None (occurrence: None)
  Receive Date: 20111204
  Receipt Date: 20111126
  Transmission Date: 20120403
  Serious: Yes (Other)
  Sender: FDA-Public Use
  Company Number: FR-CEPHALON-US014358

PATIENT
  Sex: Male

DRUGS (2)
  1. MODAFANIL [Suspect]
     Indication: NARCOLEPSY
     Route: 048
     Dates: start: 19960228, end: 19960709
  2. ASPEGIC 325 [Concomitant]
     Route: 048

REACTIONS (1)
  - LOSS OF CONSCIOUSNESS [None]
